FAERS Safety Report 20360867 (Version 1)
Quarter: 2022Q1

REPORT INFORMATION
  Report Type: Other
  Country: AT (occurrence: None)
  Receive Date: 20220121
  Receipt Date: 20220121
  Transmission Date: 20220423
  Serious: Yes (Other)
  Sender: FDA-Public Use
  Company Number: AT-ROCHE-3001653

PATIENT
  Age: 40 Year
  Sex: Female

DRUGS (1)
  1. ROZLYTREK [Suspect]
     Active Substance: ENTRECTINIB
     Indication: Lung adenocarcinoma
     Dosage: 200 MG 3-0-0
     Route: 065
     Dates: start: 20201222

REACTIONS (2)
  - Urinary tract obstruction [Unknown]
  - Constipation [Unknown]
